FAERS Safety Report 8548631-1 (Version None)
Quarter: 2012Q3

REPORT INFORMATION
  Report Type: 
  Country: None (occurrence: None)
  Receive Date: 20120717
  Receipt Date: 20120703
  Transmission Date: 20120928
  Serious: No
  Sender: FDA-Public Use
  Company Number: 2012SP031334

PATIENT
  Age: 18 Month
  Sex: Female

DRUGS (1)
  1. ISOCEF (CEFTIBUTEN) ORAL SUSPENSION [Suspect]
     Indication: PHARYNGOTONSILLITIS
     Dosage: 100 MG/ML, QD ORAL
     Route: 048
     Dates: start: 20120601, end: 20120605

REACTIONS (3)
  - OEDEMA PERIPHERAL [None]
  - PRURITUS [None]
  - RASH SCARLATINIFORM [None]
